FAERS Safety Report 7944114-8 (Version None)
Quarter: 2011Q4

REPORT INFORMATION
  Report Type: 
  Country: None (occurrence: None)
  Receive Date: 20111128
  Receipt Date: 20111121
  Transmission Date: 20120403
  Serious: Yes (Other)
  Sender: FDA-Public Use
  Company Number: US-ASTRAZENECA-2011SE70953

PATIENT
  Age: 60 Year
  Sex: Male

DRUGS (1)
  1. TOPROL-XL [Suspect]
     Route: 048

REACTIONS (5)
  - PERICARDIAL EFFUSION [None]
  - SCIATICA [None]
  - CARDIOVASCULAR DISORDER [None]
  - HYPOAESTHESIA [None]
  - LIMB PROSTHESIS USER [None]
